FAERS Safety Report 7553511-4 (Version None)
Quarter: 2011Q2

REPORT INFORMATION
  Report Type: 
  Country: None (occurrence: None)
  Receive Date: 20110617
  Receipt Date: 20110603
  Transmission Date: 20111010
  Serious: Yes (Hospitalization, Other)
  Sender: FDA-Public Use
  Company Number: US-BAYER-2011-011243

PATIENT
  Age: 41 Year
  Sex: Female
  Weight: 77.098 kg

DRUGS (3)
  1. YASMIN [Suspect]
     Indication: MENORRHAGIA
     Dosage: UNK
     Dates: start: 20080301, end: 20090101
  2. DROSPIRENONE AND ETHINYL ESTRADIOL [Suspect]
     Indication: MENORRHAGIA
     Dosage: UNK
     Dates: start: 20080301, end: 20090101
  3. SYNTHROID [Concomitant]
     Dosage: 50 ?G, UNK

REACTIONS (3)
  - INJURY [None]
  - PAIN [None]
  - CEREBROVASCULAR ACCIDENT [None]
